FAERS Safety Report 10238183 (Version 5)
Quarter: 2019Q4

REPORT INFORMATION
  Report Type: Report from Study
  Country: US (occurrence: US)
  Receive Date: 20140616
  Receipt Date: 20191001
  Transmission Date: 20200122
  Serious: Yes (Hospitalization, Other)
  Sender: FDA-Public Use
  Company Number: US-SA-2014SA078251

PATIENT
  Age: 33 Year
  Sex: Female
  Weight: 50.8 kg

DRUGS (26)
  1. AGALSIDASE BETA [Suspect]
     Active Substance: AGALSIDASE BETA
     Dosage: 55 MG,UNK
     Route: 041
     Dates: start: 20151214
  2. ACETAMINOPHEN. [Concomitant]
     Active Substance: ACETAMINOPHEN
     Dosage: 650 MG, UNK
     Route: 048
     Dates: start: 20181227
  3. AGALSIDASE BETA [Suspect]
     Active Substance: AGALSIDASE BETA
     Indication: FABRY^S DISEASE
     Dosage: 50 MG,QOW
     Route: 042
     Dates: start: 20081105
  4. AGALSIDASE BETA [Suspect]
     Active Substance: AGALSIDASE BETA
     Dosage: 55 MG,UNK
     Route: 041
     Dates: start: 20151214
  5. HEPARIN [Concomitant]
     Active Substance: HEPARIN SODIUM
     Indication: FLUSHING
     Dosage: 100UNIT/ML
     Route: 042
     Dates: start: 20181227
  6. MULTIVITAMINS [VITAMINS NOS] [Concomitant]
     Active Substance: VITAMINS
     Dosage: 1 TAB, EVERY MORNING
     Route: 048
     Dates: start: 20181228
  7. SINGULAIR [Concomitant]
     Active Substance: MONTELUKAST SODIUM
     Dosage: 10 MG,QD
     Route: 048
     Dates: start: 20171104
  8. VERAPAMIL [Concomitant]
     Active Substance: VERAPAMIL HYDROCHLORIDE
     Dosage: 1 DF,UNK
     Route: 048
     Dates: start: 20170619
  9. AGALSIDASE BETA [Suspect]
     Active Substance: AGALSIDASE BETA
     Dosage: 50 MG,QOW
     Route: 042
  10. AGALSIDASE BETA [Suspect]
     Active Substance: AGALSIDASE BETA
     Dosage: 55 UNK, QOW
     Route: 041
     Dates: start: 20170620
  11. ALBUTEROL [SALBUTAMOL] [Concomitant]
     Active Substance: ALBUTEROL
     Dosage: 2 DF, QW
     Route: 055
     Dates: start: 20170623
  12. BUSPIRONE [Concomitant]
     Active Substance: BUSPIRONE HYDROCHLORIDE
     Dosage: 1 TAB, BID (PRN)
     Route: 048
     Dates: start: 20180903
  13. QVAR [Concomitant]
     Active Substance: BECLOMETHASONE DIPROPIONATE
     Dosage: 2 DF (1-2 TIMES A DAY)
     Route: 055
     Dates: start: 20170623
  14. OXYCODONE HYDROCHLORIDE;PARACETAMOL [Concomitant]
     Active Substance: ACETAMINOPHEN\OXYCODONE HYDROCHLORIDE
     Dosage: 1 DF,PRN
     Route: 048
     Dates: start: 20170623
  15. AGALSIDASE BETA [Suspect]
     Active Substance: AGALSIDASE BETA
     Dosage: 55 UNK, QOW
     Route: 041
     Dates: start: 20181227
  16. LYRICA [Concomitant]
     Active Substance: PREGABALIN
     Dosage: 1 DF,UNK
     Route: 048
     Dates: start: 20170619
  17. EPINEPHRINE. [Concomitant]
     Active Substance: EPINEPHRINE
     Indication: ANAPHYLACTIC REACTION
     Dosage: 0.3 MG, PRN
     Route: 030
     Dates: start: 20181227
  18. SODIUM CHLORIDE. [Concomitant]
     Active Substance: SODIUM CHLORIDE
     Indication: FLUSHING
     Dosage: 0.90 %, UNK
     Route: 042
     Dates: start: 20181227
  19. SALBUTAMOL [Concomitant]
     Active Substance: ALBUTEROL
     Dosage: 2 DF,UNK
     Route: 065
     Dates: start: 20170623
  20. ELMIRON [Concomitant]
     Active Substance: PENTOSAN POLYSULFATE SODIUM
     Dosage: 1 DF,UNK
     Route: 048
     Dates: start: 20170619
  21. PROZAC [Concomitant]
     Active Substance: FLUOXETINE HYDROCHLORIDE
     Dosage: 3 CAP, QD (EVERY MORNING)
     Route: 048
     Dates: start: 20180621
  22. PIROXICAM. [Concomitant]
     Active Substance: PIROXICAM
     Dosage: 1 DF,UNK
     Route: 048
     Dates: start: 20170619
  23. TIZANIDINE. [Concomitant]
     Active Substance: TIZANIDINE
     Dosage: 1 TAB, HS (BED TIME)
     Route: 048
     Dates: start: 20180423
  24. TRAZODONE [Concomitant]
     Active Substance: TRAZODONE HYDROCHLORIDE
     Dosage: 1 TAB, HS (BED TIME)
     Route: 048
     Dates: start: 20180501
  25. STERILE WATER [Concomitant]
     Active Substance: WATER
     Dosage: 1 EACH
     Route: 042
     Dates: start: 20181227
  26. NORMAL SALINE [Concomitant]
     Active Substance: SODIUM CHLORIDE
     Indication: FLUSHING
     Dosage: 0.90 %, UNK
     Route: 042
     Dates: start: 20181227

REACTIONS (29)
  - Malaise [Not Recovered/Not Resolved]
  - Impaired driving ability [Not Recovered/Not Resolved]
  - Central nervous system lesion [Not Recovered/Not Resolved]
  - Gastrointestinal disorder [Not Recovered/Not Resolved]
  - Headache [Not Recovered/Not Resolved]
  - Hypoaesthesia [Unknown]
  - Influenza [Unknown]
  - Dysarthria [Not Recovered/Not Resolved]
  - Confusional state [Not Recovered/Not Resolved]
  - Bronchitis [Unknown]
  - Abdominal pain [Not Recovered/Not Resolved]
  - Pain [Not Recovered/Not Resolved]
  - Multiple sclerosis [Not Recovered/Not Resolved]
  - Malaise [Not Recovered/Not Resolved]
  - Pyrexia [Recovered/Resolved]
  - Seizure [Not Recovered/Not Resolved]
  - Constipation [Recovered/Resolved]
  - Dyspnoea [Not Recovered/Not Resolved]
  - Condition aggravated [Unknown]
  - Migraine [Unknown]
  - Cardiovascular disorder [Not Recovered/Not Resolved]
  - Thrombosis [Not Recovered/Not Resolved]
  - Transient ischaemic attack [Unknown]
  - Hepatic enzyme increased [Not Recovered/Not Resolved]
  - Influenza [Not Recovered/Not Resolved]
  - Aura [Not Recovered/Not Resolved]
  - Weight decreased [Not Recovered/Not Resolved]
  - Fluid retention [Not Recovered/Not Resolved]
  - Tinnitus [Not Recovered/Not Resolved]

NARRATIVE: CASE EVENT DATE: 20120810
